FAERS Safety Report 8241924 (Version 3)
Quarter: 2012Q4

REPORT INFORMATION
  Report Type: 
  Country: ES (occurrence: ES)
  Receive Date: 20111111
  Receipt Date: 20121224
  Transmission Date: 20130627
  Serious: Yes (Hospitalization)
  Sender: FDA-Public Use
  Company Number: PHHO2011ES018423

PATIENT
  Age: 75 Year
  Sex: Female

DRUGS (9)
  1. REPAGLINIDE [Concomitant]
     Indication: DIABETES MELLITUS
     Dosage: 0.8 mg/ 8 h
     Route: 048
     Dates: start: 20111014, end: 20111102
  2. METFORMIN [Concomitant]
     Indication: DIABETES MELLITUS
     Dosage: 850 mg, QD
     Route: 048
     Dates: start: 2000, end: 20111102
  3. OMEPRAZOLE [Concomitant]
     Indication: PROPHYLAXIS
     Dosage: 20 mg, QD
     Route: 048
     Dates: start: 20110915
  4. LISINOPRIL W/HYDROCHLOROTHIAZIDE [Concomitant]
     Indication: HYPERTENSION
     Dosage: 20 mg/12.5mg/ 12 hours
     Route: 048
     Dates: start: 2000
  5. ZOLPIDEM [Concomitant]
     Indication: INSOMNIA
     Dosage: PRN
     Route: 048
     Dates: start: 20110915
  6. EMULIQUEN SIMPLE [Concomitant]
     Indication: CONSTIPATION
     Dosage: PRN
     Route: 048
  7. PARACETAMOL [Concomitant]
     Indication: PAIN
     Dosage: PRN
     Route: 048
  8. SOM230 [Suspect]
     Dosage: 60 mg, UNK
     Dates: start: 20111014, end: 20111014
  9. AFINITOR [Suspect]
     Dosage: 10 mg, QD
     Route: 048
     Dates: start: 20121014

REACTIONS (1)
  - Diabetic ketoacidosis [Not Recovered/Not Resolved]
